FAERS Safety Report 5660417-4 (Version None)
Quarter: 2008Q1

REPORT INFORMATION
  Report Type: 
  Country: None (occurrence: None)
  Receive Date: 20080311
  Receipt Date: 20071017
  Transmission Date: 20080703
  Serious: No
  Sender: FDA-Public Use
  Company Number: US-BAYER-200713392BCC

PATIENT
  Age: 61 Year
  Sex: Female
  Weight: 70 kg

DRUGS (3)
  1. ALEVE [Suspect]
     Indication: HEADACHE
     Dosage: TOTAL DAILY DOSE: 220 MG  UNIT DOSE: 220 MG
     Route: 048
     Dates: start: 20071016
  2. LISINOPRIL [Concomitant]
  3. AMLODIPINE BESYLATE [Concomitant]

REACTIONS (12)
  - ASTHENIA [None]
  - DIARRHOEA [None]
  - DIZZINESS [None]
  - HYPERSENSITIVITY [None]
  - HYPOAESTHESIA ORAL [None]
  - LIP SWELLING [None]
  - OEDEMA PERIPHERAL [None]
  - PRURITUS [None]
  - PRURITUS GENERALISED [None]
  - SWOLLEN TONGUE [None]
  - THROAT IRRITATION [None]
  - VOMITING [None]
